FAERS Safety Report 6817615-3 (Version None)
Quarter: 2010Q3

REPORT INFORMATION
  Report Type: 
  Country: None (occurrence: None)
  Receive Date: 20100706
  Receipt Date: 20100629
  Transmission Date: 20110219
  Serious: Yes (Death)
  Sender: FDA-Public Use
  Company Number: ES-CELGENEUS-144-21880-10063148

PATIENT
  Sex: Female
  Weight: 56 kg

DRUGS (20)
  1. REVLIMID [Suspect]
     Indication: MULTIPLE MYELOMA
     Route: 048
     Dates: start: 20100506, end: 20100603
  2. CYCLOPHOSPHAMIDE [Suspect]
     Indication: MULTIPLE MYELOMA
     Route: 048
     Dates: start: 20100506, end: 20100603
  3. PREDNISONE TAB [Suspect]
     Indication: MULTIPLE MYELOMA
     Route: 048
     Dates: start: 20100506, end: 20100603
  4. ALLOPURINOL [Concomitant]
     Route: 048
     Dates: start: 20100422
  5. KALPRESS PLUS [Concomitant]
     Indication: HYPERTENSION
     Route: 048
  6. VADITON [Concomitant]
     Route: 048
  7. METFORMIN HCL [Concomitant]
     Route: 048
  8. PANTOPRAZOLE [Concomitant]
     Indication: PROPHYLAXIS
     Route: 048
  9. FUROSEMIDE [Concomitant]
     Indication: DIURETIC THERAPY
     Route: 048
  10. BOI K [Concomitant]
     Indication: PRODUCT USED FOR UNKNOWN INDICATION
     Route: 048
  11. ONDANSETRON [Concomitant]
     Indication: NAUSEA
     Route: 048
  12. PHENTANYL [Concomitant]
     Dosage: 1 PATCH
     Route: 062
  13. MORPHINE [Concomitant]
     Indication: PAIN
     Route: 051
  14. FOLIC ACID [Concomitant]
     Route: 048
  15. ZOMETA [Concomitant]
     Indication: PROPHYLAXIS
     Route: 051
     Dates: start: 20100531
  16. EFFENTORA [Concomitant]
     Indication: PRODUCT USED FOR UNKNOWN INDICATION
     Route: 048
  17. HYDROXYL [Concomitant]
     Route: 048
  18. ADIRO [Concomitant]
     Indication: ANTICOAGULANT THERAPY
     Route: 048
  19. PLANTABEN [Concomitant]
     Indication: LAXATIVE SUPPORTIVE CARE
     Route: 048
  20. DUPHALAC [Concomitant]
     Indication: LAXATIVE SUPPORTIVE CARE
     Route: 048

REACTIONS (1)
  - DEATH [None]
